FAERS Safety Report 20237391 (Version 1)
Quarter: 2021Q4

REPORT INFORMATION
  Report Type: Spontaneous
  Country: US (occurrence: None)
  Receive Date: 20211227
  Receipt Date: 20211227
  Transmission Date: 20220303
  Serious: Yes (Other)
  Sender: FDA-Public Use
  Company Number: None

PATIENT
  Age: 52 Year
  Sex: Female

DRUGS (2)
  1. XELJANZ [Suspect]
     Active Substance: TOFACITINIB CITRATE
  2. XELJANZ XR [Concomitant]
     Active Substance: TOFACITINIB CITRATE
     Dates: start: 20201020, end: 20211227

REACTIONS (1)
  - Pancreatic carcinoma [None]
